FAERS Safety Report 19960403 (Version 1)
Quarter: 2021Q4

REPORT INFORMATION
  Report Type: Spontaneous
  Country: US (occurrence: US)
  Receive Date: 20211015
  Receipt Date: 20211015
  Transmission Date: 20220303
  Serious: No
  Sender: FDA-Public Use
  Company Number: US-COLLEGIUM PHARMACEUTICAL, INC.-2021CGM00644

PATIENT
  Age: 73 Year
  Sex: Male
  Weight: 70.3 kg

DRUGS (2)
  1. NUCYNTA ER [Suspect]
     Active Substance: TAPENTADOL HYDROCHLORIDE
     Indication: Arthralgia
     Dosage: 100 MG, EVERY 12 HOURS
     Route: 048
     Dates: start: 20210416, end: 20210429
  2. HYDROCODONE [Concomitant]
     Active Substance: HYDROCODONE
     Dosage: UNK
     Dates: start: 2012

REACTIONS (16)
  - Reaction to excipient [Recovered/Resolved]
  - Synovial disorder [Recovered/Resolved]
  - Arthralgia [Recovered/Resolved]
  - Joint stiffness [Recovered/Resolved]
  - Arthritis [Recovered/Resolved]
  - Blood albumin decreased [Unknown]
  - Alpha 1 globulin increased [Unknown]
  - Alpha 2 globulin increased [Unknown]
  - Blood creatine phosphokinase increased [Unknown]
  - White blood cell count increased [Unknown]
  - Neutrophil count increased [Unknown]
  - Monocyte count increased [Unknown]
  - C-reactive protein increased [Unknown]
  - Insomnia [Recovered/Resolved]
  - Therapeutic product effect incomplete [Recovered/Resolved]
  - Drug ineffective [Recovered/Resolved]

NARRATIVE: CASE EVENT DATE: 20210401
